FAERS Safety Report 15798683 (Version 1)
Quarter: 2019Q1

REPORT INFORMATION
  Report Type: Spontaneous
  Country: US (occurrence: US)
  Receive Date: 20190108
  Receipt Date: 20190108
  Transmission Date: 20190417
  Serious: Yes (Hospitalization)
  Sender: FDA-Public Use
  Company Number: None

PATIENT
  Age: 51 Year
  Sex: Female

DRUGS (12)
  1. METOPROLOL. [Concomitant]
     Active Substance: METOPROLOL
  2. VITAMIN D [Concomitant]
     Active Substance: CHOLECALCIFEROL
  3. HUMIRA [Suspect]
     Active Substance: ADALIMUMAB
     Indication: CROHN^S DISEASE
     Dosage: ?          OTHER FREQUENCY:EVERY WEEK;?
     Route: 058
     Dates: start: 20180327
  4. GABAPENTIN. [Concomitant]
     Active Substance: GABAPENTIN
  5. ROSUVASTATIN. [Concomitant]
     Active Substance: ROSUVASTATIN
  6. HYDROCHLOROTHIAZIDE. [Concomitant]
     Active Substance: HYDROCHLOROTHIAZIDE
  7. METHOTREXATE. [Concomitant]
     Active Substance: METHOTREXATE
  8. OMEPRAZOLE. [Concomitant]
     Active Substance: OMEPRAZOLE
  9. HYDROCO/APAP [Concomitant]
     Active Substance: ACETAMINOPHEN\HYDROCODONE
  10. CYCLOBENZAPRINE. [Concomitant]
     Active Substance: CYCLOBENZAPRINE
  11. HYDROXYCHLOR [Concomitant]
     Active Substance: HYDROXYCHLOROQUINE
  12. PRAMIPEXOLE. [Concomitant]
     Active Substance: PRAMIPEXOLE

REACTIONS (1)
  - Surgery [None]

NARRATIVE: CASE EVENT DATE: 20181231
